FAERS Safety Report 11828837 (Version 4)
Quarter: 2016Q1

REPORT INFORMATION
  Report Type: Spontaneous
  Country: DE (occurrence: DE)
  Receive Date: 20151211
  Receipt Date: 20160218
  Transmission Date: 20160525
  Serious: Yes (Other)
  Sender: FDA-Public Use
  Company Number: DE-SA-2015SA206291

PATIENT
  Sex: Male

DRUGS (1)
  1. AUBAGIO [Suspect]
     Active Substance: TERIFLUNOMIDE
     Indication: MULTIPLE SCLEROSIS
     Route: 048
     Dates: start: 201412, end: 201511

REACTIONS (7)
  - Pancreatitis [Recovering/Resolving]
  - C-reactive protein increased [Recovering/Resolving]
  - Appetite disorder [Recovering/Resolving]
  - Blood bilirubin increased [Unknown]
  - Lipase increased [Recovering/Resolving]
  - Cholelithiasis [Unknown]
  - Diarrhoea [Recovered/Resolved]
